FAERS Safety Report 9317915 (Version 2)
Quarter: 2013Q1

REPORT INFORMATION
  Report Type: Spontaneous
  Country: NL (occurrence: None)
  Receive Date: 20121212
  Receipt Date: 20121228
  Transmission Date: 20140127
  Serious: Yes (Hospitalization, Other)
  Sender: FDA-Public Use
  Company Number: 20120702

PATIENT
  Age: 78 Year
  Sex: Female

DRUGS (7)
  1. VENOFER (IRON SUCROSE INJECTION-VIFOR) (IRON SUCROSE INJECTION) 20MG/ML [Suspect]
     Indication: IRON DEFICIENCY ANAEMIA
     Dosage: IN 300 ML NACL?
     Route: 042
     Dates: start: 20121026, end: 20121026
  2. ALFACALCIDOL, 0.25 MCG ORAL UNK/UNK [Concomitant]
  3. EPO(MIRCERA PEGZEREPOETIN ALFA), 50 MCG SUBCUTANEOUS UNK/UNK [Concomitant]
  4. NADROPARINE, 2850 IU SUBCUTANEOUS UNK/UNK [Concomitant]
  5. RENAGEL, 1600 MG ORAL UNK/UNK [Concomitant]
  6. SIMVASTATINE, 40 MG ORAL UNK/UNK [Concomitant]
  7. METOPROLOL, 50 MG ORAL UNK/UNK [Concomitant]

REACTIONS (4)
  - Injection site extravasation [None]
  - Injection site discolouration [None]
  - Injection site pain [None]
  - Injection site swelling [None]
